FAERS Safety Report 4286232-4 (Version None)
Quarter: 2004Q1

REPORT INFORMATION
  Report Type: 
  Country: None (occurrence: None)
  Receive Date: 20040202
  Receipt Date: 20040121
  Transmission Date: 20041129
  Serious: Yes (Hospitalization)
  Sender: FDA-Public Use
  Company Number: 229920

PATIENT
  Age: 83 Year
  Sex: Female

DRUGS (10)
  1. INNOLET R CHU(INSULIN HUMAN) SOLUTION FOR INJECTION, 100IU/ML [Suspect]
     Indication: INSULIN-REQUIRING TYPE II DIABETES MELLITUS
     Dosage: 4 IU, QD, SUBCUTANEOUS
     Route: 058
     Dates: start: 20030628, end: 20030629
  2. LIPITOR [Concomitant]
  3. ALLOZYM (ALLOPURINOL) [Concomitant]
  4. TINELAC (SENNOSIDE A+B) [Concomitant]
  5. NORVASC [Concomitant]
  6. BLOPRESS (CANDESARTAN CILEXETIL) [Concomitant]
  7. AMARYL [Concomitant]
  8. SELBEX (TEPRENONE) [Concomitant]
  9. LAC B (LACTOBACILLUS BIFIDUS, LYOPHILIZED) [Concomitant]
  10. FAMOTIDINE [Concomitant]

REACTIONS (5)
  - ARTHRALGIA [None]
  - C-REACTIVE PROTEIN INCREASED [None]
  - DIARRHOEA [None]
  - PYREXIA [None]
  - RENAL CELL CARCINOMA STAGE UNSPECIFIED [None]
